FAERS Safety Report 25753169 (Version 3)
Quarter: 2025Q4

REPORT INFORMATION
  Report Type: Report from Study
  Country: US (occurrence: US)
  Receive Date: 20250902
  Receipt Date: 20251003
  Transmission Date: 20260118
  Serious: Yes (Other)
  Sender: ABBVIE
  Company Number: US-ABBVIE-6438409

PATIENT
  Age: 78 Year
  Sex: Male
  Weight: 65.77 kg

DRUGS (4)
  1. SKYRIZI [Suspect]
     Active Substance: RISANKIZUMAB-RZAA
     Indication: Crohn^s disease
     Route: 058
     Dates: start: 20240626, end: 20250709
  2. VITAMIN D3 [Concomitant]
     Active Substance: CHOLECALCIFEROL
     Indication: Vitamin supplementation
  3. VITAMIN B12 [Concomitant]
     Active Substance: CYANOCOBALAMIN
     Indication: Vitamin supplementation
  4. ELIQUIS [Concomitant]
     Active Substance: APIXABAN
     Indication: Cerebrovascular accident prophylaxis

REACTIONS (10)
  - Squamous cell carcinoma [Recovering/Resolving]
  - Skin burning sensation [Not Recovered/Not Resolved]
  - Peripheral swelling [Recovering/Resolving]
  - Headache [Recovering/Resolving]
  - Abdominal pain upper [Recovered/Resolved]
  - Flatulence [Not Recovered/Not Resolved]
  - Feeling abnormal [Recovering/Resolving]
  - Diarrhoea [Not Recovered/Not Resolved]
  - Pain in extremity [Not Recovered/Not Resolved]
  - Drug ineffective [Not Recovered/Not Resolved]

NARRATIVE: CASE EVENT DATE: 20250501
